FAERS Safety Report 6458787-2 (Version None)
Quarter: 2009Q4

REPORT INFORMATION
  Report Type: 
  Country: None (occurrence: None)
  Receive Date: 20091127
  Receipt Date: 20091117
  Transmission Date: 20100525
  Serious: Yes (Hospitalization)
  Sender: FDA-Public Use
  Company Number: FR-ROCHE-670087

PATIENT
  Sex: Female

DRUGS (4)
  1. CELLCEPT [Suspect]
     Indication: PROPHYLAXIS AGAINST TRANSPLANT REJECTION
     Route: 048
     Dates: start: 20090901
  2. NEORAL [Suspect]
     Indication: PROPHYLAXIS AGAINST TRANSPLANT REJECTION
     Dosage: VIA NASAL GASTRIC CATHETER
     Route: 048
     Dates: start: 20090831
  3. MOPRAL [Suspect]
     Indication: GASTRITIS PROPHYLAXIS
     Dosage: VIA NASAL GASTRIC CATHETER
     Route: 048
     Dates: start: 20090831
  4. SOLU-MEDROL [Concomitant]
     Route: 048
     Dates: start: 20090831

REACTIONS (1)
  - BEZOAR [None]
